FAERS Safety Report 20695927 (Version 1)
Quarter: 2022Q2

REPORT INFORMATION
  Report Type: Spontaneous
  Country: US (occurrence: None)
  Receive Date: 20220408
  Receipt Date: 20220408
  Transmission Date: 20220721
  Serious: Yes (Hospitalization)
  Sender: FDA-Public Use
  Company Number: None

PATIENT
  Sex: Male

DRUGS (1)
  1. DALFAMPRIDINE [Suspect]
     Active Substance: DALFAMPRIDINE
     Indication: Multiple sclerosis
     Dosage: TAKE ONE TABLET BY MOUTH EVERY 12 HOURS?
     Route: 048
     Dates: start: 20210821

REACTIONS (2)
  - Fall [None]
  - Spinal operation [None]
